FAERS Safety Report 4776396-8 (Version None)
Quarter: 2005Q3

REPORT INFORMATION
  Report Type: 
  Country: None (occurrence: None)
  Receive Date: 20050921
  Receipt Date: 20050810
  Transmission Date: 20060218
  Serious: Yes (Other)
  Sender: FDA-Public Use
  Company Number: 2005RR-00669

PATIENT
  Age: 18 Year
  Sex: Male

DRUGS (3)
  1. AMOXICILLIN CLAVULANATE POTASSIUM(AMOXICILLIN TRIHYDRATE) [Suspect]
     Indication: BRONCHITIS
  2. ACETYLSALICYLIC ACID LYSINATE [Concomitant]
  3. DEXTROMETHORPHAN HYDROBROMIDE [Concomitant]

REACTIONS (3)
  - ANOREXIA [None]
  - ASTHENIA [None]
  - CHOLESTASIS [None]
